FAERS Safety Report 9432491 (Version 1)
Quarter: 2013Q3

REPORT INFORMATION
  Report Type: Spontaneous
  Country: FI (occurrence: FI)
  Receive Date: 20130731
  Receipt Date: 20130731
  Transmission Date: 20140515
  Serious: Yes (Life-Threatening)
  Sender: FDA-Public Use
  Company Number: FI-NOVOPROD-383921

PATIENT
  Age: 53 Year
  Sex: Male

DRUGS (13)
  1. VICTOZA [Suspect]
     Indication: DIABETES MELLITUS
     Dosage: 1.8 MG, QD
     Route: 058
     Dates: start: 20120501
  2. NOVORAPID FLEXPEN [Concomitant]
     Indication: DIABETES MELLITUS
     Dosage: UNKNOWN
     Route: 058
  3. ROSUVASTATIN ACTAVIS [Concomitant]
     Dosage: 10MG
     Route: 048
  4. PRIMASPAN [Concomitant]
     Dosage: 100MG
     Route: 048
  5. LANTUS [Concomitant]
     Dosage: 100 IU/ML
     Route: 058
  6. FURESIS [Concomitant]
     Dosage: 20MG
     Route: 048
  7. EUCREAS [Concomitant]
     Dosage: 50 MG/1000 MG
     Route: 048
  8. ZANIDIP [Concomitant]
     Dosage: 10 MG
     Route: 048
  9. GASTERIX [Concomitant]
     Dosage: 15 MG
     Route: 048
  10. METFOREM [Concomitant]
     Dosage: 500 MG
     Route: 048
  11. DIGOXIN [Concomitant]
     Dosage: 0.25 MG
     Route: 048
  12. BISOPROLOL ACTAVIS [Concomitant]
     Dosage: 10 MG
     Route: 048
  13. ENALAPRIL ORION [Concomitant]
     Dosage: 10 MG
     Route: 048

REACTIONS (1)
  - Pancreatic carcinoma [Recovered/Resolved with Sequelae]
